FAERS Safety Report 9852852 (Version 2)
Quarter: 2014Q1

REPORT INFORMATION
  Report Type: Spontaneous
  Country: US (occurrence: US)
  Receive Date: 20140129
  Receipt Date: 20140314
  Transmission Date: 20141002
  Serious: Yes (Death, Hospitalization)
  Sender: FDA-Public Use
  Company Number: US-PFIZER INC-2014025761

PATIENT
  Age: 84 Year
  Sex: Female

DRUGS (11)
  1. MORPHINE SULFATE [Suspect]
     Dosage: 15 MG, 2X/DAY
     Route: 048
  2. OXYCODONE HYDROCHLORIDE [Suspect]
     Dosage: 5 MG, 4X/DAY
     Route: 048
  3. COUMADIN [Concomitant]
     Dosage: UNK
  4. POTASSIUM CHLORIDE [Concomitant]
     Dosage: UNK
  5. PROTONIX [Concomitant]
     Dosage: UNK
  6. AMITIZA [Concomitant]
     Dosage: UNK
  7. SYNTHROID [Concomitant]
     Dosage: UNK
  8. TYLENOL [Concomitant]
     Dosage: UNK
  9. LISINOPRIL [Concomitant]
     Dosage: UNK
  10. LASIX [Concomitant]
  11. PANCRELIPASE [Concomitant]

REACTIONS (7)
  - Cardiac failure [Fatal]
  - Respiratory failure [Fatal]
  - Pleural effusion [Fatal]
  - Hyponatraemia [Fatal]
  - Asthenia [Fatal]
  - Decreased appetite [Fatal]
  - Constipation [Fatal]
